FAERS Safety Report 14985767 (Version 1)
Quarter: 2018Q2

REPORT INFORMATION
  Report Type: Spontaneous
  Country: US (occurrence: US)
  Receive Date: 20180607
  Receipt Date: 20180607
  Transmission Date: 20180711
  Serious: No
  Sender: FDA-Public Use
  Company Number: US-MORTON GROVE PHARMACEUTICALS, INC.-2049138

PATIENT
  Age: 61 Year
  Sex: Male
  Weight: 95 kg

DRUGS (5)
  1. GENERLAC [Suspect]
     Active Substance: LACTULOSE
     Indication: HEPATIC ENCEPHALOPATHY
     Route: 048
  2. XIFAXAN [Concomitant]
     Active Substance: RIFAXIMIN
  3. FUROSEMIDE. [Concomitant]
     Active Substance: FUROSEMIDE
  4. KLONOPIN [Concomitant]
     Active Substance: CLONAZEPAM
  5. PANTOPRAZOLE [Concomitant]
     Active Substance: PANTOPRAZOLE

REACTIONS (2)
  - Vomiting [Recovered/Resolved]
  - Nausea [Recovered/Resolved]
